FAERS Safety Report 25981190 (Version 1)
Quarter: 2025Q4

REPORT INFORMATION
  Report Type: Spontaneous
  Country: CA (occurrence: CA)
  Receive Date: 20251030
  Receipt Date: 20251030
  Transmission Date: 20260118
  Serious: Yes (Hospitalization)
  Sender: PFIZER
  Company Number: CA-PFIZER INC-202500213723

PATIENT
  Age: 83 Year
  Sex: Female

DRUGS (1)
  1. ABRILADA [Suspect]
     Active Substance: ADALIMUMAB-AFZB
     Indication: Pyoderma gangrenosum
     Dosage: 1 DF, (80MG WEEK 0 , THEN 40MG EVERY WEEK)
     Route: 058
     Dates: start: 20231105

REACTIONS (1)
  - Fall [Recovering/Resolving]
